FAERS Safety Report 7954793-7 (Version None)
Quarter: 2011Q4

REPORT INFORMATION
  Report Type: 
  Country: None (occurrence: None)
  Receive Date: 20111202
  Receipt Date: 20111125
  Transmission Date: 20120403
  Serious: Yes (Hospitalization, Other)
  Sender: FDA-Public Use
  Company Number: JP-ABBOTT-11P-087-0725294-00

PATIENT
  Sex: Female
  Weight: 45 kg

DRUGS (18)
  1. HUMIRA [Suspect]
     Indication: CROHN'S DISEASE
     Route: 058
     Dates: start: 20101224, end: 20101224
  2. HUMIRA [Suspect]
     Dates: start: 20110121
  3. SULFASALAZINE [Concomitant]
     Indication: CROHN'S DISEASE
     Dosage: 3000 MG DAILY
     Route: 048
     Dates: start: 20060801
  4. LACTOMIN [Concomitant]
     Indication: PRODUCT USED FOR UNKNOWN INDICATION
     Route: 048
     Dates: start: 20060801
  5. DICLOFENAC SODIUM [Concomitant]
     Indication: CROHN'S DISEASE
  6. HUMIRA [Suspect]
     Dates: start: 20110107, end: 20110107
  7. POLYCARBOPHIL CALCIUM [Concomitant]
     Indication: PRODUCT USED FOR UNKNOWN INDICATION
     Dosage: 1500 MG DAILY
     Route: 048
     Dates: start: 20060801
  8. MESALAMINE [Concomitant]
     Indication: CROHN'S DISEASE
     Route: 048
     Dates: start: 20060801
  9. POLYCARBOPHIL CALCIUM [Concomitant]
     Indication: CROHN'S DISEASE
  10. LACTOMIN [Concomitant]
     Indication: CROHN'S DISEASE
  11. SUMATRIPTAN [Concomitant]
     Indication: MIGRAINE
     Route: 048
  12. BERBERINE CHLORIDE HYDRATE/GERANIUM HERB EXTRACT [Concomitant]
     Indication: PRODUCT USED FOR UNKNOWN INDICATION
     Route: 048
     Dates: start: 20060801
  13. BERBERINE CHLORIDE HYDRATE/GERANIUM HERB EXTRACT [Concomitant]
     Indication: CROHN'S DISEASE
  14. HERBAL MEDICINE (DAIKENCHUTO) [Concomitant]
     Indication: CROHN'S DISEASE
  15. DICLOFENAC SODIUM [Concomitant]
     Indication: PRODUCT USED FOR UNKNOWN INDICATION
     Route: 048
     Dates: end: 20110402
  16. REBAMIPIDE [Concomitant]
     Indication: PROPHYLAXIS AGAINST GASTROINTESTINAL ULCER
     Route: 048
     Dates: start: 20110223, end: 20110402
  17. FERROUS CITRATE [Concomitant]
     Indication: ANAEMIA
     Dosage: 100 MG DAILY
     Route: 048
     Dates: start: 20060801
  18. HERBAL MEDICINE (DAIKENCHUTO) [Concomitant]
     Indication: PRODUCT USED FOR UNKNOWN INDICATION
     Dosage: 7.5G DAILY
     Route: 048
     Dates: start: 20060801

REACTIONS (4)
  - PULMONARY ARTERY THROMBOSIS [None]
  - PHLEBITIS [None]
  - DEEP VEIN THROMBOSIS [None]
  - ANAEMIA [None]
